FAERS Safety Report 7687974-0 (Version None)
Quarter: 2011Q3

REPORT INFORMATION
  Report Type: 
  Country: None (occurrence: None)
  Receive Date: 20110817
  Receipt Date: 20100803
  Transmission Date: 20111222
  Serious: Yes (Other)
  Sender: FDA-Public Use
  Company Number: US-PFIZER INC-2010097878

PATIENT
  Sex: Female
  Weight: 81.633 kg

DRUGS (6)
  1. WELLBUTRIN [Concomitant]
     Dosage: UNK
  2. FOSAMAX [Concomitant]
     Dosage: UNK
  3. INSULIN [Concomitant]
     Indication: DIABETES MELLITUS
     Dosage: UNK
  4. TRAZODONE [Concomitant]
     Dosage: UNK
  5. LYRICA [Suspect]
     Indication: NEURALGIA
     Dosage: 150 MG, 2X/DAY
     Dates: start: 20080301
  6. LISINOPRIL [Concomitant]
     Dosage: UNK

REACTIONS (6)
  - BLOOD PRESSURE DECREASED [None]
  - BLOOD CHOLESTEROL DECREASED [None]
  - OEDEMA PERIPHERAL [None]
  - AMNESIA [None]
  - DRUG INEFFECTIVE [None]
  - WEIGHT INCREASED [None]
